FAERS Safety Report 9585960 (Version 8)
Quarter: 2014Q3

REPORT INFORMATION
  Report Type: Spontaneous
  Country: US (occurrence: US)
  Receive Date: 20131003
  Receipt Date: 20140914
  Transmission Date: 20150326
  Serious: Yes (Other)
  Sender: FDA-Public Use
  Company Number: US-009507513-1310USA001447

PATIENT
  Age: 54 Year
  Sex: Male
  Weight: 90.7 kg

DRUGS (7)
  1. VICTRELIS [Suspect]
     Active Substance: BOCEPREVIR
     Dosage: 2400MG(800MG, 3 IN 1 D)
     Route: 065
     Dates: start: 20130905
  2. COPEGUS [Suspect]
     Active Substance: RIBAVIRIN
     Dosage: 800MG DAILY, (1 IN 1 D)
     Route: 065
     Dates: start: 20131112, end: 2013
  3. VICTRELIS [Suspect]
     Active Substance: BOCEPREVIR
     Indication: CHRONIC HEPATITIS C
     Dosage: 800 MG, TID
     Route: 065
     Dates: start: 20130808
  4. COPEGUS [Suspect]
     Active Substance: RIBAVIRIN
     Dosage: 400 MG DAILY, (1 IN 1 D)
     Route: 065
     Dates: start: 20140121
  5. PEGASYS [Suspect]
     Active Substance: PEGINTERFERON ALFA-2A
     Indication: CHRONIC HEPATITIS C
     Dosage: 180 MICROGRAM, EVERY WEEK, FORMULATION: PROCLICK AUTOINJECTOR
     Route: 058
     Dates: start: 20130808
  6. COPEGUS [Suspect]
     Active Substance: RIBAVIRIN
     Indication: CHRONIC HEPATITIS C
     Dosage: 1200 MG IN DIVIDED DOSES,(1 IN 1 D)
     Route: 048
     Dates: start: 20130808, end: 2013
  7. COPEGUS [Suspect]
     Active Substance: RIBAVIRIN
     Dosage: 600 MG DAILY, (1 IN 1 D)
     Route: 065
     Dates: start: 20131209

REACTIONS (11)
  - Type 2 diabetes mellitus [Unknown]
  - Pruritus [Unknown]
  - Nasopharyngitis [Unknown]
  - Weight increased [Unknown]
  - Diarrhoea [Unknown]
  - Nausea [Unknown]
  - Transfusion [Unknown]
  - Rash [Unknown]
  - Fatigue [Recovered/Resolved]
  - Nausea [Unknown]
  - Anaemia [Not Recovered/Not Resolved]

NARRATIVE: CASE EVENT DATE: 2013
